FAERS Safety Report 13966380 (Version 1)
Quarter: 2017Q3

REPORT INFORMATION
  Report Type: Spontaneous
  Country: UY (occurrence: US)
  Receive Date: 20170913
  Receipt Date: 20170913
  Transmission Date: 20171128
  Serious: Yes (Other)
  Sender: FDA-Public Use
  Company Number: US-TEVA-805949USA

PATIENT
  Age: 12 Year
  Sex: Male
  Weight: 44.49 kg

DRUGS (3)
  1. MONTELUKAST [Concomitant]
     Active Substance: MONTELUKAST SODIUM
     Route: 065
  2. PROAIR HFA [Suspect]
     Active Substance: ALBUTEROL SULFATE
     Indication: ASTHMA EXERCISE INDUCED
     Dosage: 3 PUFFS PRIOR TO EXERCISE
     Route: 065
     Dates: start: 20170906
  3. ZYRTEC [Concomitant]
     Active Substance: CETIRIZINE HYDROCHLORIDE

REACTIONS (6)
  - Urticaria [Recovered/Resolved]
  - Pruritus [Recovered/Resolved]
  - Ear discomfort [Recovered/Resolved]
  - Burning sensation [Recovered/Resolved]
  - Tremor [Recovered/Resolved]
  - Generalised erythema [Recovered/Resolved]

NARRATIVE: CASE EVENT DATE: 20170906
